FAERS Safety Report 6020579-6 (Version None)
Quarter: 2008Q4

REPORT INFORMATION
  Report Type: 
  Country: None (occurrence: None)
  Receive Date: 20081227
  Receipt Date: 20081222
  Transmission Date: 20090506
  Serious: Yes (Other)
  Sender: FDA-Public Use
  Company Number: CL-JNJFOC-20081204952

PATIENT
  Sex: Male

DRUGS (7)
  1. PREZISTA [Suspect]
     Indication: HIV INFECTION
  2. RITONAVIR [Suspect]
     Indication: HIV INFECTION
  3. SERETIDE [Interacting]
     Indication: ASTHMA
     Dosage: DOSE REPORTED AS 125 ML/KG
     Route: 055
  4. KALETRA [Concomitant]
     Indication: HIV INFECTION
  5. EFAVIRENZ [Concomitant]
     Indication: HIV INFECTION
  6. AZT [Concomitant]
     Indication: HIV INFECTION
  7. 3TC [Concomitant]
     Indication: HIV INFECTION

REACTIONS (3)
  - CUSHING'S SYNDROME [None]
  - DRUG INTERACTION [None]
  - OFF LABEL USE [None]
